FAERS Safety Report 21928165 (Version 1)
Quarter: 2023Q1

REPORT INFORMATION
  Report Type: Spontaneous
  Country: US (occurrence: US)
  Receive Date: 20230130
  Receipt Date: 20230130
  Transmission Date: 20230418
  Serious: No
  Sender: FDA-Public Use
  Company Number: US-BAUSCH-BL-2023-001102

PATIENT
  Age: 50 Year
  Sex: Male
  Weight: 70.31 kg

DRUGS (1)
  1. APLENZIN [Suspect]
     Active Substance: BUPROPION HYDROBROMIDE
     Indication: Antidepressant therapy
     Dosage: TAKING FOR ABOUT 8 MONTHS
     Route: 065

REACTIONS (4)
  - Abdominal discomfort [Unknown]
  - Muscle strain [Not Recovered/Not Resolved]
  - Increased tendency to bruise [Unknown]
  - Dyspepsia [Unknown]
